FAERS Safety Report 5409081-X (Version None)
Quarter: 2007Q3

REPORT INFORMATION
  Report Type: 
  Country: None (occurrence: None)
  Receive Date: 20070808
  Receipt Date: 20070806
  Transmission Date: 20080115
  Serious: Yes (Hospitalization, Other)
  Sender: FDA-Public Use
  Company Number: GB-MERCK-0707GBR00062

PATIENT
  Age: 7 Year
  Sex: Male

DRUGS (3)
  1. INDOCIN [Suspect]
     Route: 065
  2. IBUPROFEN [Suspect]
     Route: 065
  3. DICLOFENAC SODIUM [Suspect]
     Route: 054

REACTIONS (3)
  - BLOOD CREATINE INCREASED [None]
  - BLOOD UREA INCREASED [None]
  - RENAL FAILURE ACUTE [None]
